FAERS Safety Report 17894256 (Version 2)
Quarter: 2020Q2

REPORT INFORMATION
  Report Type: Report from Study
  Country: ES (occurrence: ES)
  Receive Date: 20200615
  Receipt Date: 20200616
  Transmission Date: 20200714
  Serious: Yes (Hospitalization, Other)
  Sender: FDA-Public Use
  Company Number: ES-BIOVITRUM-2020ES2863

PATIENT
  Age: 77 Year
  Sex: Male

DRUGS (17)
  1. ANAKINRA [Suspect]
     Active Substance: ANAKINRA
     Indication: COVID-19
     Route: 042
     Dates: start: 20200522, end: 20200526
  2. ENOXAPARIN [Concomitant]
     Active Substance: ENOXAPARIN
     Indication: CARDIAC DISORDER
  3. CLOPERASTINE [Concomitant]
     Active Substance: CLOPERASTINE
     Indication: ANAEMIA
     Route: 048
     Dates: start: 20200604
  4. FUROSEMIDE. [Concomitant]
     Active Substance: FUROSEMIDE
     Indication: CHRONIC KIDNEY DISEASE
     Route: 042
     Dates: start: 20200521
  5. NITROGLYCERINE [Concomitant]
     Active Substance: NITROGLYCERIN
     Indication: CARDIAC DISORDER
     Route: 042
     Dates: start: 20200527, end: 20200527
  6. NITROGLYCERINE [Concomitant]
     Active Substance: NITROGLYCERIN
     Dates: start: 20200604
  7. ACETYLSALCYLIC ACID [Concomitant]
     Active Substance: ASPIRIN
     Indication: CARDIAC DISORDER
     Dates: start: 20200523
  8. CEFTRIAXONA [Concomitant]
     Active Substance: CEFTRIAXONE
     Indication: COVID-19
     Route: 042
     Dates: start: 20200521, end: 20200528
  9. PANTOPRAZOLE [Concomitant]
     Active Substance: PANTOPRAZOLE
  10. OMEPRAZOLE. [Concomitant]
     Active Substance: OMEPRAZOLE
     Indication: GASTRITIS PROPHYLAXIS
     Dates: start: 20130226
  11. ATORVASTATIN [Concomitant]
     Active Substance: ATORVASTATIN
     Indication: DYSLIPIDAEMIA
     Dates: start: 20180521
  12. TAZOBACTAN [Concomitant]
     Indication: COVID-19
     Route: 042
     Dates: start: 20200528, end: 20200606
  13. CLOPIDOGREL [Concomitant]
     Active Substance: CLOPIDOGREL BISULFATE
     Indication: CARDIAC DISORDER
     Dates: start: 20200524
  14. ENOXAPARIN [Concomitant]
     Active Substance: ENOXAPARIN
     Indication: COVID-19
     Route: 058
     Dates: start: 20200523, end: 20200529
  15. ERYTHROPOIETIN [Concomitant]
     Active Substance: ERYTHROPOIETIN
     Indication: ANAEMIA
     Route: 058
     Dates: start: 20200604
  16. PIPERACILLIN. [Concomitant]
     Active Substance: PIPERACILLIN SODIUM
     Indication: COVID-19
     Route: 042
     Dates: start: 20200528, end: 20200606
  17. IRON [Concomitant]
     Active Substance: IRON
     Indication: ANAEMIA
     Route: 042
     Dates: start: 20200604

REACTIONS (1)
  - Acute coronary syndrome [Recovered/Resolved]

NARRATIVE: CASE EVENT DATE: 20200527
